FAERS Safety Report 4334405-4 (Version None)
Quarter: 2004Q1

REPORT INFORMATION
  Report Type: 
  Country: None (occurrence: None)
  Receive Date: 20040325
  Receipt Date: 20040106
  Transmission Date: 20041129
  Serious: No
  Sender: FDA-Public Use
  Company Number: USA040155679

PATIENT
  Age: 83 Year
  Sex: Male

DRUGS (1)
  1. FORTEO [Suspect]
     Indication: OSTEOPOROSIS
     Dates: start: 20031129

REACTIONS (3)
  - BLOOD CALCIUM INCREASED [None]
  - FEELING ABNORMAL [None]
  - NERVOUSNESS [None]
